FAERS Safety Report 20840630 (Version 1)
Quarter: 2022Q2

REPORT INFORMATION
  Report Type: Spontaneous
  Country: US (occurrence: US)
  Receive Date: 20220517
  Receipt Date: 20220517
  Transmission Date: 20220721
  Serious: Yes (Hospitalization, Other)
  Sender: FDA-Public Use
  Company Number: US-BRISTOL-MYERS SQUIBB COMPANY-2022-027538

PATIENT
  Age: 69 Year
  Sex: Male

DRUGS (2)
  1. POMALYST [Suspect]
     Active Substance: POMALIDOMIDE
     Indication: Plasma cell myeloma
     Dosage: TAKE 1 CAPSULE BY MOUTH NIGHTLY FOR 21 DAYS ON AND 7 DAYS OFF
     Route: 048
     Dates: start: 20211113
  2. DEXAMETHASONE [Concomitant]
     Active Substance: DEXAMETHASONE

REACTIONS (4)
  - Fall [Unknown]
  - Contusion [Unknown]
  - Localised infection [Unknown]
  - Thrombosis [Unknown]

NARRATIVE: CASE EVENT DATE: 20220328
